FAERS Safety Report 10606065 (Version 1)
Quarter: 2014Q4

REPORT INFORMATION
  Report Type: Spontaneous
  Country: US (occurrence: None)
  Receive Date: 20141121
  Receipt Date: 20141121
  Transmission Date: 20150529
  Serious: Yes (Hospitalization)
  Sender: FDA-Public Use
  Company Number: 201411056

PATIENT
  Age: 62 Year

DRUGS (2)
  1. DEPO-TESTOSTERONE [Suspect]
     Active Substance: TESTOSTERONE CYPIONATE
  2. TESTIM [Suspect]
     Active Substance: TESTOSTERONE
     Indication: BLOOD TESTOSTERONE DECREASED
     Route: 062

REACTIONS (9)
  - Thrombosis [None]
  - Deep vein thrombosis [None]
  - Family stress [None]
  - Pain [None]
  - Emotional disorder [None]
  - Mental disorder [None]
  - Injury [None]
  - Anxiety [None]
  - Unevaluable event [None]

NARRATIVE: CASE EVENT DATE: 20120413
